FAERS Safety Report 7513320-9 (Version None)
Quarter: 2011Q2

REPORT INFORMATION
  Report Type: 
  Country: None (occurrence: None)
  Receive Date: 20110525
  Receipt Date: 20110525
  Transmission Date: 20111010
  Serious: Yes (Life-Threatening, Hospitalization)
  Sender: FDA-Public Use
  Company Number: None

PATIENT
  Age: 55 Year
  Sex: Female
  Weight: 77.1115 kg

DRUGS (2)
  1. ABILIFY [Suspect]
     Dosage: TAKEN ONCE, + 1/2 NEXT MORNING ACCORDING TO DR'S ADVICE  ORALLY
     Route: 048
     Dates: start: 20110412
  2. ABILIFY [Suspect]
     Dosage: TAKEN ONCE, + 1/2 NEXT MORNING ACCORDING TO DR'S ADVICE  ORALLY
     Route: 048
     Dates: start: 20110411

REACTIONS (5)
  - DRUG INTERACTION [None]
  - ABASIA [None]
  - FEELING ABNORMAL [None]
  - DYSARTHRIA [None]
  - HYPOPNOEA [None]
